FAERS Safety Report 5821234-5 (Version None)
Quarter: 2008Q3

REPORT INFORMATION
  Report Type: 
  Country: None (occurrence: None)
  Receive Date: 20080723
  Receipt Date: 20080716
  Transmission Date: 20090109
  Serious: Yes (Other)
  Sender: FDA-Public Use
  Company Number: APP200800678

PATIENT
  Sex: 0

DRUGS (8)
  1. HEPARIN SODIUM INJECTION [Suspect]
     Indication: INTRAVENOUS CATHETER MANAGEMENT
     Dosage: 10 ML, FLUSH, INTRA-ARTERIAL
     Route: 013
     Dates: start: 20080519, end: 20080519
  2. TRICOR (ADENOSINE) [Concomitant]
  3. ASPIRIN [Concomitant]
  4. NEXIUM [Concomitant]
  5. TOPROL-XL [Concomitant]
  6. DALMANE [Concomitant]
  7. DYAZIDE [Concomitant]
  8. KLONOPIN [Concomitant]

REACTIONS (2)
  - CATHETER THROMBOSIS [None]
  - DRUG INEFFECTIVE [None]
